FAERS Safety Report 9157336 (Version 1)
Quarter: 2013Q1

REPORT INFORMATION
  Report Type: Spontaneous
  Country: US (occurrence: US)
  Receive Date: 20130312
  Receipt Date: 20130312
  Transmission Date: 20140127
  Serious: No
  Sender: FDA-Public Use
  Company Number: US-BAYER-2013-030852

PATIENT
  Age: 41 Year
  Sex: Male

DRUGS (1)
  1. MAGNEVIST [Suspect]
     Dosage: 18 ML, ONCE
     Dates: start: 20130301, end: 20130301

REACTIONS (2)
  - Malaise [None]
  - Hyperhidrosis [None]
